FAERS Safety Report 23983134 (Version 1)
Quarter: 2024Q2

REPORT INFORMATION
  Report Type: Spontaneous
  Country: DE (occurrence: DE)
  Receive Date: 20240617
  Receipt Date: 20240617
  Transmission Date: 20240715
  Serious: Yes (Death, Hospitalization, Other)
  Sender: FDA-Public Use
  Company Number: DE-PEI-202400012721

PATIENT
  Age: 85 Year
  Sex: Male
  Weight: 65 kg

DRUGS (2)
  1. OPDIVO [Suspect]
     Active Substance: NIVOLUMAB
     Indication: Non-small cell lung cancer
     Dates: start: 20240309
  2. CABOZANTINIB [Concomitant]
     Active Substance: CABOZANTINIB
     Indication: Product used for unknown indication
     Dates: start: 202402

REACTIONS (7)
  - Apathy [Fatal]
  - Asthenia [Fatal]
  - Vision blurred [Fatal]
  - Neck pain [Fatal]
  - Myasthenia gravis crisis [Fatal]
  - Ageusia [Fatal]
  - Respiratory failure [Fatal]
